FAERS Safety Report 19130600 (Version 1)
Quarter: 2021Q2

REPORT INFORMATION
  Report Type: Spontaneous
  Country: US (occurrence: US)
  Receive Date: 20210414
  Receipt Date: 20210414
  Transmission Date: 20210717
  Serious: No
  Sender: FDA-Public Use
  Company Number: US-ASTRAZENECA-2021A177264

PATIENT
  Sex: Female

DRUGS (1)
  1. TAGRISSO [Suspect]
     Active Substance: OSIMERTINIB
     Dosage: UNKNOWN UNKNOWN
     Route: 048
     Dates: start: 201909

REACTIONS (4)
  - Asthenia [Unknown]
  - Hypotension [Unknown]
  - Fatigue [Unknown]
  - Blood pressure fluctuation [Unknown]
